FAERS Safety Report 12609949 (Version 1)
Quarter: 2016Q3

REPORT INFORMATION
  Report Type: Spontaneous
  Country: US (occurrence: US)
  Receive Date: 20160801
  Receipt Date: 20160801
  Transmission Date: 20161109
  Serious: Yes (Other)
  Sender: FDA-Public Use
  Company Number: US-CELGENEUS-USA-2016075165

PATIENT

DRUGS (2)
  1. THALOMID [Suspect]
     Active Substance: THALIDOMIDE
     Indication: PLASMA CELL MYELOMA
     Dosage: 200 MILLIGRAM
     Route: 048
  2. DEXAMETHASONE. [Concomitant]
     Active Substance: DEXAMETHASONE
     Indication: PLASMA CELL MYELOMA
     Route: 048

REACTIONS (15)
  - Syncope [Unknown]
  - Blood alkaline phosphatase increased [Unknown]
  - Sedation [Unknown]
  - Deep vein thrombosis [Unknown]
  - Constipation [Unknown]
  - Fatigue [Unknown]
  - Neuropathy peripheral [Unknown]
  - Tremor [Unknown]
  - Arrhythmia [Unknown]
  - Skin exfoliation [Unknown]
  - Inner ear inflammation [Unknown]
  - Depression [Unknown]
  - Rash [Unknown]
  - Oedema [Unknown]
  - Epidermal necrosis [Unknown]
